FAERS Safety Report 9705815 (Version 2)
Quarter: 2013Q4

REPORT INFORMATION
  Report Type: Spontaneous
  Country: US (occurrence: US)
  Receive Date: 20131122
  Receipt Date: 20131122
  Transmission Date: 20140711
  Serious: Yes (Hospitalization)
  Sender: FDA-Public Use
  Company Number: US-GILEAD-2008-0017469

PATIENT
  Age: 66 Year
  Sex: Female
  Weight: 50.8 kg

DRUGS (11)
  1. LETAIRIS [Suspect]
     Indication: PULMONARY ARTERIAL HYPERTENSION
     Route: 048
     Dates: start: 20080611, end: 20080702
  2. LASIX [Concomitant]
     Route: 048
  3. COZAAR [Concomitant]
     Route: 048
  4. SYMBICORT [Concomitant]
  5. PLAQUENIL [Concomitant]
     Route: 048
  6. FOSAMAX [Concomitant]
     Route: 048
  7. PREDNISONE [Concomitant]
     Route: 048
  8. CELEBREX [Concomitant]
     Route: 048
  9. NEXIUM [Concomitant]
     Route: 048
  10. METHADONE [Concomitant]
     Route: 048
  11. PLAVIX [Concomitant]

REACTIONS (2)
  - Oedema [Not Recovered/Not Resolved]
  - Haemoglobin decreased [Not Recovered/Not Resolved]
